FAERS Safety Report 7709804-0 (Version None)
Quarter: 2011Q3

REPORT INFORMATION
  Report Type: 
  Country: None (occurrence: None)
  Receive Date: 20110825
  Receipt Date: 20110823
  Transmission Date: 20111222
  Serious: Yes (Death, Hospitalization)
  Sender: FDA-Public Use
  Company Number: GB-PFIZER INC-2011186694

PATIENT
  Age: 18 Year
  Sex: Female

DRUGS (2)
  1. MISOPROSTOL [Suspect]
     Indication: ABORTION INDUCED
     Dosage: 800 UG, SINGLE
     Route: 067
     Dates: start: 20060612, end: 20060612
  2. MIFEPRISTONE (MIFEPREX) [Suspect]
     Indication: ABORTION INDUCED
     Dosage: 200 MG, 1X/DAY
     Dates: start: 20060610, end: 20060610

REACTIONS (9)
  - UTERINE HAEMORRHAGE [None]
  - BRAIN DEATH [None]
  - HYPOTENSION [None]
  - INCORRECT ROUTE OF DRUG ADMINISTRATION [None]
  - CARDIAC ARREST [None]
  - CIRCUMSTANCE OR INFORMATION CAPABLE OF LEADING TO MEDICATION ERROR [None]
  - PYREXIA [None]
  - CONVULSION [None]
  - INCORRECT DOSE ADMINISTERED [None]
